FAERS Safety Report 18326095 (Version 4)
Quarter: 2020Q4

REPORT INFORMATION
  Report Type: Spontaneous
  Country: RU (occurrence: RU)
  Receive Date: 20200929
  Receipt Date: 20201016
  Transmission Date: 20210113
  Serious: Yes (Death, Life-Threatening, Hospitalization, Other)
  Sender: FDA-Public Use
  Company Number: RU-JNJFOC-20200927753

PATIENT
  Age: 26 Year
  Sex: Female

DRUGS (4)
  1. RIOCIGUAT. [Concomitant]
     Active Substance: RIOCIGUAT
     Dates: start: 2017
  2. UPTRAVI [Suspect]
     Active Substance: SELEXIPAG
     Indication: PULMONARY ARTERIAL HYPERTENSION
     Route: 048
     Dates: start: 20200805, end: 20200904
  3. WARFARIN [Concomitant]
     Active Substance: WARFARIN
     Dates: start: 2017
  4. AMBRISENTAN [Concomitant]
     Active Substance: AMBRISENTAN
     Dates: start: 2017

REACTIONS (3)
  - Nausea [Recovered/Resolved]
  - Pulmonary arterial hypertension [Fatal]
  - Vomiting [Recovered/Resolved]

NARRATIVE: CASE EVENT DATE: 20200826
